FAERS Safety Report 7561401-6 (Version None)
Quarter: 2011Q2

REPORT INFORMATION
  Report Type: 
  Country: None (occurrence: None)
  Receive Date: 20110621
  Receipt Date: 20100831
  Transmission Date: 20111010
  Serious: No
  Sender: FDA-Public Use
  Company Number: US-ASTRAZENECA-2010SE38116

PATIENT
  Sex: Female
  Weight: 65.8 kg

DRUGS (11)
  1. CARDIA XT [Concomitant]
  2. TRAZODONE HCL [Concomitant]
  3. PULMICORT FLEXHALER [Suspect]
     Indication: ASTHMA
     Dosage: 180 MCG 1 PUFF QD FOR 3 MONTHS
     Route: 055
     Dates: start: 20100325
  4. SINGULAIR [Concomitant]
  5. TAVATIN [Concomitant]
  6. PEPCID [Concomitant]
  7. HYDROXYUREA [Concomitant]
  8. ATENOLOL [Concomitant]
  9. LEVSIN [Concomitant]
  10. TRIAMTERENE AND HYDROCHLOROTHIAZIDE [Concomitant]
  11. XANAX [Concomitant]

REACTIONS (3)
  - WHITE BLOOD CELL COUNT INCREASED [None]
  - RED BLOOD CELL COUNT INCREASED [None]
  - WEIGHT INCREASED [None]
